FAERS Safety Report 8762752 (Version 2)
Quarter: 2012Q4

REPORT INFORMATION
  Report Type: 
  Country: JP (occurrence: JP)
  Receive Date: 20120828
  Receipt Date: 20120912
  Transmission Date: 20130627
  Serious: Yes (Other)
  Sender: FDA-Public Use
  Company Number: JP-JNJFOC-20120813201

PATIENT
  Age: 47 Year
  Sex: Male
  Weight: 59 kg

DRUGS (10)
  1. XARELTO [Suspect]
     Indication: ATRIAL FIBRILLATION
     Route: 048
     Dates: start: 20120530, end: 20120817
  2. XARELTO [Suspect]
     Indication: THROMBOSIS PROPHYLAXIS
     Route: 048
     Dates: start: 20120530, end: 20120817
  3. BISOPROLOL FUMARATE [Suspect]
     Indication: HEART RATE INCREASED
     Route: 048
     Dates: start: 20120622, end: 20120813
  4. LARILUDON (ENALAPRIL MALEATE) [Concomitant]
     Indication: CARDIAC FAILURE
     Route: 048
     Dates: start: 20120427
  5. ARTIST [Concomitant]
     Indication: CARDIAC FAILURE
     Route: 048
     Dates: start: 20120427
  6. LANIRAPID [Concomitant]
     Indication: CARDIAC FAILURE
     Route: 048
     Dates: start: 20120427
  7. FUROSEMIDE [Concomitant]
     Indication: CARDIAC FAILURE
     Route: 048
     Dates: start: 20120427
  8. EPLERENONE [Concomitant]
     Indication: CARDIAC FAILURE
     Route: 048
     Dates: start: 20120427
  9. TAKEPRON [Concomitant]
     Indication: HAEMORRHAGE PROPHYLAXIS
     Route: 048
     Dates: start: 20120427
  10. VASOLAN [Concomitant]
     Indication: HEART RATE INCREASED
     Route: 048
     Dates: start: 20120427

REACTIONS (2)
  - Hepatic function abnormal [Recovering/Resolving]
  - Gastrointestinal haemorrhage [Recovering/Resolving]
